FAERS Safety Report 20195059 (Version 5)
Quarter: 2022Q1

REPORT INFORMATION
  Report Type: Report from Study
  Country: US (occurrence: US)
  Receive Date: 20211216
  Receipt Date: 20220225
  Transmission Date: 20220423
  Serious: Yes (Hospitalization)
  Sender: FDA-Public Use
  Company Number: US-JNJFOC-20211162306

PATIENT
  Age: 67 Year
  Sex: Male
  Weight: 104 kg

DRUGS (15)
  1. DARATUMUMAB [Suspect]
     Active Substance: DARATUMUMAB
     Indication: Plasma cell myeloma
     Dosage: WITH THE MOST RECENT DOSE ON 10-NOV-2021, C6D1?DOSE ALSO REPORTED AS 15 ML
     Route: 058
     Dates: start: 20210609
  2. LISINOPRIL AND HYDROCHLOROTHIAZIDE [Concomitant]
     Active Substance: HYDROCHLOROTHIAZIDE\LISINOPRIL
     Indication: Hypertension
     Dosage: DOSE 20 MG - 25 MG
     Route: 048
     Dates: start: 20010101
  3. ACYCLOVIR [Concomitant]
     Active Substance: ACYCLOVIR
     Indication: Antiviral prophylaxis
     Route: 048
     Dates: start: 20141001
  4. POTASSIUM CHLORIDE [Concomitant]
     Active Substance: POTASSIUM CHLORIDE
     Indication: Mineral supplementation
     Route: 048
     Dates: start: 20141001
  5. ASPIRIN [Concomitant]
     Active Substance: ASPIRIN
     Indication: Anticoagulant therapy
     Route: 048
     Dates: start: 20141001
  6. CALCIUM CARBONATE [Concomitant]
     Active Substance: CALCIUM CARBONATE
     Indication: Drug therapy
     Route: 048
     Dates: start: 20141001
  7. CHOLECALCIFEROL (VITAMIN D) [Concomitant]
     Indication: Vitamin supplementation
     Route: 048
     Dates: start: 20141001
  8. MORPHINE [Concomitant]
     Active Substance: MORPHINE
     Indication: Back pain
     Route: 048
     Dates: start: 20141001
  9. CHLORHEXIDINE [Concomitant]
     Active Substance: CHLORHEXIDINE
     Indication: Infection prophylaxis
     Route: 048
     Dates: start: 20150101
  10. ALENDRONATE [Concomitant]
     Active Substance: ALENDRONATE SODIUM
     Indication: Osteoporosis prophylaxis
     Route: 048
     Dates: start: 20180101
  11. SODIUM CHLORIDE [Concomitant]
     Active Substance: SODIUM CHLORIDE
     Indication: Nasal congestion
     Route: 045
     Dates: start: 20200904
  12. PANTOPRAZOLE [Concomitant]
     Active Substance: PANTOPRAZOLE
     Indication: Hiatus hernia
     Route: 048
     Dates: start: 20200917
  13. VARENICLINE [Concomitant]
     Active Substance: VARENICLINE
     Indication: Prophylaxis
     Route: 048
     Dates: start: 20210514
  14. TYLENOL [Concomitant]
     Active Substance: ACETAMINOPHEN
     Indication: Procedural pain
     Route: 048
     Dates: start: 20211020
  15. OXYCODONE [Concomitant]
     Active Substance: OXYCODONE
     Indication: Back pain
     Route: 048

REACTIONS (2)
  - Respiratory failure [Recovered/Resolved]
  - Upper respiratory tract infection [Recovered/Resolved]

NARRATIVE: CASE EVENT DATE: 20211123
